FAERS Safety Report 25078908 (Version 1)
Quarter: 2025Q1

REPORT INFORMATION
  Report Type: Spontaneous
  Country: US (occurrence: US)
  Receive Date: 20250314
  Receipt Date: 20250314
  Transmission Date: 20250409
  Serious: Yes (Hospitalization, Other)
  Sender: UNICHEM
  Company Number: US-UNICHEM LABORATORIES LIMITED-UNI-2025-US-001476

PATIENT

DRUGS (3)
  1. TIZANIDINE [Interacting]
     Active Substance: TIZANIDINE
     Indication: Back pain
     Route: 065
  2. LISINOPRIL [Interacting]
     Active Substance: LISINOPRIL
     Indication: Hypertension
     Route: 065
  3. METOPROLOL SUCCINATE [Suspect]
     Active Substance: METOPROLOL SUCCINATE
     Indication: Hypertension
     Route: 065

REACTIONS (2)
  - Drug interaction [Recovered/Resolved]
  - Hypotension [Recovered/Resolved]
